FAERS Safety Report 4679080-4 (Version None)
Quarter: 2005Q2

REPORT INFORMATION
  Report Type: 
  Country: None (occurrence: None)
  Receive Date: 20050527
  Receipt Date: 20050513
  Transmission Date: 20051028
  Serious: Yes (Hospitalization)
  Sender: FDA-Public Use
  Company Number: 2005BI009612

PATIENT
  Age: 53 Year
  Sex: Female
  Weight: 59.8748 kg

DRUGS (1)
  1. AVONEX [Suspect]
     Indication: MULTIPLE SCLEROSIS
     Dosage: 30 UG; QW; IM
     Route: 030
     Dates: start: 20050419, end: 20050426

REACTIONS (8)
  - AMNESIA [None]
  - ASTHENIA [None]
  - BLOOD POTASSIUM DECREASED [None]
  - COLITIS [None]
  - CONDITION AGGRAVATED [None]
  - HYPERTENSION [None]
  - PARAESTHESIA [None]
  - VASOCONSTRICTION [None]
